FAERS Safety Report 14092442 (Version 1)
Quarter: 2017Q4

REPORT INFORMATION
  Report Type: Spontaneous
  Country: ZA (occurrence: ZA)
  Receive Date: 20171016
  Receipt Date: 20171016
  Transmission Date: 20180321
  Serious: Yes (Other)
  Sender: FDA-Public Use
  Company Number: ZA-CIPLA LTD.-2016ZA07971

PATIENT

DRUGS (5)
  1. OSTEOBON [Suspect]
     Active Substance: ALENDRONATE SODIUM
     Dosage: 70 MG, 1 PER WEEK
     Route: 065
     Dates: start: 20150907, end: 20151116
  2. OSTEOBON [Suspect]
     Active Substance: ALENDRONATE SODIUM
     Dosage: 70 MG, 1 PER WEEK
     Route: 065
     Dates: start: 20150720, end: 20150810
  3. EVERDEX ANASTROZOLE [Concomitant]
     Dosage: 1 MG, UNK
     Route: 065
     Dates: start: 201407
  4. MENACAL7 CALCIUM [Concomitant]
     Dosage: UNK
     Route: 065
     Dates: start: 201506
  5. VITAMIN PILLS, OMEGA3, MAGNESIUM, VITAMIN A [Concomitant]
     Dosage: UNK
     Route: 065

REACTIONS (14)
  - Episcleritis [Not Recovered/Not Resolved]
  - Irritability [Not Recovered/Not Resolved]
  - Fatigue [Recovering/Resolving]
  - Headache [Recovering/Resolving]
  - Scleritis [Not Recovered/Not Resolved]
  - Pain in jaw [Not Recovered/Not Resolved]
  - Back pain [None]
  - Uveitis [Not Recovered/Not Resolved]
  - Mucosal pain [Not Recovered/Not Resolved]
  - Insomnia [Unknown]
  - Vitreous floaters [None]
  - Dysgeusia [Recovering/Resolving]
  - Social problem [Not Recovered/Not Resolved]
  - Impaired driving ability [None]
